FAERS Safety Report 4664425-1 (Version None)
Quarter: 2005Q2

REPORT INFORMATION
  Report Type: 
  Country: None (occurrence: None)
  Receive Date: 20050518
  Receipt Date: 20050510
  Transmission Date: 20051028
  Serious: Yes (Hospitalization)
  Sender: FDA-Public Use
  Company Number: PHRM2005FR01501

PATIENT
  Age: 30 Year
  Sex: Female

DRUGS (1)
  1. LAMISIL [Suspect]
     Indication: NAIL TINEA
     Dosage: 250 MG, QD
     Route: 048
     Dates: start: 20050201, end: 20050401

REACTIONS (3)
  - HYPERHIDROSIS [None]
  - LYMPHADENOPATHY [None]
  - LYMPHOMA [None]
